FAERS Safety Report 21214546 (Version 2)
Quarter: 2022Q3

REPORT INFORMATION
  Report Type: Report from Study
  Country: AU (occurrence: AU)
  Receive Date: 20220816
  Receipt Date: 20220818
  Transmission Date: 20221027
  Serious: Yes (Other)
  Sender: FDA-Public Use
  Company Number: AU-BAYER-2021-207790

PATIENT
  Sex: Male

DRUGS (3)
  1. EYLEA [Suspect]
     Active Substance: AFLIBERCEPT
     Indication: Diabetic retinal oedema
     Dosage: 1 DF, Q1MON, SOLUTION FOR INJECTION
     Route: 031
     Dates: start: 20210401
  2. EYLEA [Suspect]
     Active Substance: AFLIBERCEPT
     Dosage: 5 WEEKS, SOLUTION FOR INJECTION
     Route: 031
  3. COVID-19 VACCINE NOS [Concomitant]
     Active Substance: COVID-19 VACCINE NOS
     Indication: Product used for unknown indication
     Dosage: JUST HAD HIS 2ND COVID INJECTION

REACTIONS (11)
  - Blindness unilateral [Recovering/Resolving]
  - Eye disorder [Recovering/Resolving]
  - Vision blurred [Recovering/Resolving]
  - Diabetes mellitus inadequate control [Not Recovered/Not Resolved]
  - Product dose omission issue [Unknown]
  - Vision blurred [Not Recovered/Not Resolved]
  - Cataract operation [Recovered/Resolved]
  - Vision blurred [Unknown]
  - Cataract operation [Recovered/Resolved]
  - Glare [Unknown]
  - Cardiac operation [Recovered/Resolved with Sequelae]

NARRATIVE: CASE EVENT DATE: 20210101
